FAERS Safety Report 9194272 (Version 1)
Quarter: 2013Q1

REPORT INFORMATION
  Report Type: Spontaneous
  Country: FR (occurrence: FR)
  Receive Date: 20130327
  Receipt Date: 20130327
  Transmission Date: 20140127
  Serious: Yes (Hospitalization, Other)
  Sender: FDA-Public Use
  Company Number: FR-NICOBRDEVP-2013-04943

PATIENT
  Age: 14 Year
  Sex: Female

DRUGS (1)
  1. SALBUTAMOL (UNKNOWN) [Suspect]
     Indication: INTENTIONAL DRUG MISUSE
     Dosage: 12 PUFFS, SINGLE
     Route: 003

REACTIONS (2)
  - Application site burn [Unknown]
  - Intentional drug misuse [Unknown]
